FAERS Safety Report 7796661-X (Version None)
Quarter: 2011Q3

REPORT INFORMATION
  Report Type: 
  Country: None (occurrence: None)
  Receive Date: 20110930
  Receipt Date: 20110926
  Transmission Date: 20111222
  Serious: Yes (Hospitalization)
  Sender: FDA-Public Use
  Company Number: US-001861

PATIENT
  Sex: Female
  Weight: 86.7 kg

DRUGS (5)
  1. HYDROCHLOROTHIAZIDE [Concomitant]
  2. KUVAN [Suspect]
     Indication: PHENYLKETONURIA
     Dosage: 1500 MG QD ORAL
     Route: 048
     Dates: start: 20090130
  3. GLYBURIDE [Concomitant]
  4. PRENATAL VITAMINS /01549301/ [Concomitant]
  5. NIFEDIPINE [Concomitant]

REACTIONS (3)
  - CAESAREAN SECTION [None]
  - GESTATIONAL DIABETES [None]
  - MATERNAL EXPOSURE DURING PREGNANCY [None]
